FAERS Safety Report 13794110 (Version 1)
Quarter: 2017Q3

REPORT INFORMATION
  Report Type: Spontaneous
  Country: GB (occurrence: GB)
  Receive Date: 20170726
  Receipt Date: 20170726
  Transmission Date: 20171127
  Serious: Yes (Other)
  Sender: FDA-Public Use
  Company Number: GB-BAXTER-2017BAX027692

PATIENT
  Sex: Female

DRUGS (3)
  1. HEPARIN [Suspect]
     Active Substance: HEPARIN SODIUM
     Indication: ANTICOAGULANT THERAPY
     Dosage: 1 UNIT PER ML
     Route: 042
     Dates: start: 20170706
  2. HEPARIN [Suspect]
     Active Substance: HEPARIN SODIUM
     Indication: FLUSHING
  3. SODIUM CHLORIDE INTRAVENOUS INFUSION BP 0.9% W/V [Suspect]
     Active Substance: SODIUM CHLORIDE
     Indication: CONTINUOUS HAEMODIAFILTRATION
     Dosage: DIALYSIS TREATMENT VIA PRISMAFLEX (LOT NUMBER: PA13135)
     Route: 010
     Dates: start: 20170706

REACTIONS (1)
  - Haemorrhage [Unknown]

NARRATIVE: CASE EVENT DATE: 201707
